FAERS Safety Report 7558970-9 (Version None)
Quarter: 2011Q2

REPORT INFORMATION
  Report Type: 
  Country: None (occurrence: None)
  Receive Date: 20110613
  Receipt Date: 20090630
  Transmission Date: 20111010
  Serious: Yes (Death, Other)
  Sender: FDA-Public Use
  Company Number: TR-ACCORD-009337

PATIENT
  Age: 64 Year
  Sex: Male

DRUGS (4)
  1. IRINOTECAN HCL [Suspect]
     Indication: COLON CANCER
     Dosage: 125.00-MG/M2
  2. LEUCOVORIN(LEUCOVORIN) [Concomitant]
  3. BEVACIZUMAB(BEVACIZUMAB) [Suspect]
     Indication: COLON CANCER
     Dosage: 5.00-MG/KG-
  4. FLUOROURACIL [Suspect]
     Indication: COLON CANCER
     Dosage: 600.00-MG/M2/ INTRAVENOUS (NOT OTHERWISE SPECIFIED)
     Route: 042

REACTIONS (7)
  - CONVULSION [None]
  - COLON CANCER [None]
  - LOSS OF CONSCIOUSNESS [None]
  - NEOPLASM PROGRESSION [None]
  - INTRACRANIAL VENOUS SINUS THROMBOSIS [None]
  - REFUSAL OF TREATMENT BY PATIENT [None]
  - HYPERCOAGULATION [None]
